FAERS Safety Report 24275045 (Version 1)
Quarter: 2024Q3

REPORT INFORMATION
  Report Type: Spontaneous
  Country: IT (occurrence: IT)
  Receive Date: 20240902
  Receipt Date: 20240902
  Transmission Date: 20241016
  Serious: Yes (Hospitalization, Other)
  Sender: COLLEGIUM PHARMACEUTICAL
  Company Number: None

PATIENT
  Age: 54 Year
  Sex: Male

DRUGS (1)
  1. NUCYNTA ER [Suspect]
     Active Substance: TAPENTADOL HYDROCHLORIDE
     Indication: Back pain
     Dosage: 50 MILLIGRAM, BID
     Route: 048
     Dates: start: 20240619, end: 20240622

REACTIONS (2)
  - Psychotic disorder [Recovered/Resolved with Sequelae]
  - Hallucination [Recovered/Resolved with Sequelae]

NARRATIVE: CASE EVENT DATE: 20240619
